FAERS Safety Report 8150259-2 (Version None)
Quarter: 2012Q1

REPORT INFORMATION
  Report Type: 
  Country: None (occurrence: None)
  Receive Date: 20120220
  Receipt Date: 20120213
  Transmission Date: 20120608
  Serious: Yes (Disabling)
  Sender: FDA-Public Use
  Company Number: US-PFIZER INC-2012038714

PATIENT
  Sex: Female
  Weight: 54.875 kg

DRUGS (5)
  1. DIAZEPAM [Concomitant]
     Dosage: UNK
  2. OXYCODONE [Concomitant]
     Dosage: UNK
  3. NEURONTIN [Suspect]
     Indication: MULTIPLE SCLEROSIS
     Dosage: 300 MG, 3X/DAY
     Route: 048
  4. OXYCODONE [Concomitant]
     Indication: PAIN
     Dosage: UNK
  5. NEURONTIN [Suspect]
     Dosage: 400 MG, 4X/DAY
     Dates: start: 20120210

REACTIONS (5)
  - MOVEMENT DISORDER [None]
  - PRURITUS [None]
  - SKIN LESION [None]
  - RASH [None]
  - PAIN IN EXTREMITY [None]
